FAERS Safety Report 22749360 (Version 2)
Quarter: 2023Q4

REPORT INFORMATION
  Report Type: Spontaneous
  Country: CA (occurrence: CA)
  Receive Date: 20230725
  Receipt Date: 20231229
  Transmission Date: 20240110
  Serious: Yes (Death, Other)
  Sender: FDA-Public Use
  Company Number: CA-BRISTOL-MYERS SQUIBB COMPANY-2023-104696

PATIENT
  Age: 44 Year
  Sex: Female

DRUGS (293)
  1. ORENCIA [Suspect]
     Active Substance: ABATACEPT
     Indication: Rheumatoid arthritis
     Route: 042
  2. ORENCIA [Suspect]
     Active Substance: ABATACEPT
     Indication: Product used for unknown indication
     Route: 058
  3. ORENCIA [Suspect]
     Active Substance: ABATACEPT
  4. ORENCIA [Suspect]
     Active Substance: ABATACEPT
     Route: 041
  5. ORENCIA [Suspect]
     Active Substance: ABATACEPT
     Route: 058
  6. ORENCIA [Suspect]
     Active Substance: ABATACEPT
  7. ORENCIA [Suspect]
     Active Substance: ABATACEPT
     Route: 058
  8. ACETAMINOPHEN [Concomitant]
     Active Substance: ACETAMINOPHEN
     Indication: Rheumatoid arthritis
  9. ACETAMINOPHEN [Concomitant]
     Active Substance: ACETAMINOPHEN
     Indication: Product used for unknown indication
  10. ACTEMRA [Concomitant]
     Active Substance: TOCILIZUMAB
     Indication: Rheumatoid arthritis
     Route: 042
  11. ACTEMRA [Concomitant]
     Active Substance: TOCILIZUMAB
     Indication: Product used for unknown indication
     Route: 042
  12. ACTEMRA [Concomitant]
     Active Substance: TOCILIZUMAB
  13. ACTEMRA [Concomitant]
     Active Substance: TOCILIZUMAB
     Route: 042
  14. ACTEMRA [Concomitant]
     Active Substance: TOCILIZUMAB
  15. ACTEMRA [Concomitant]
     Active Substance: TOCILIZUMAB
     Route: 042
  16. ACTEMRA [Concomitant]
     Active Substance: TOCILIZUMAB
     Route: 042
  17. ACTEMRA [Concomitant]
     Active Substance: TOCILIZUMAB
     Route: 042
  18. ACTEMRA [Concomitant]
     Active Substance: TOCILIZUMAB
     Route: 058
  19. ACTEMRA [Concomitant]
     Active Substance: TOCILIZUMAB
     Route: 042
  20. ACTEMRA [Concomitant]
     Active Substance: TOCILIZUMAB
     Route: 042
  21. ALENDRONIC ACID [Concomitant]
     Active Substance: ALENDRONIC ACID
     Indication: Rheumatoid arthritis
  22. ALENDRONIC ACID [Concomitant]
     Active Substance: ALENDRONIC ACID
     Indication: Product used for unknown indication
  23. ALENDRONIC ACID [Concomitant]
     Active Substance: ALENDRONIC ACID
     Route: 048
  24. ADALIMUMAB [Concomitant]
     Active Substance: ADALIMUMAB\ISOPROPYL ALCOHOL
     Indication: Psoriatic arthropathy
     Route: 058
  25. ADALIMUMAB [Concomitant]
     Active Substance: ADALIMUMAB\ISOPROPYL ALCOHOL
     Indication: Product used for unknown indication
     Dosage: SOLUTION SUBCUTANEOUS
     Route: 058
  26. ADALIMUMAB [Concomitant]
     Active Substance: ADALIMUMAB\ISOPROPYL ALCOHOL
     Route: 048
  27. PREDNISONE [Concomitant]
     Active Substance: PREDNISONE
     Indication: Rheumatoid arthritis
  28. PREDNISONE [Concomitant]
     Active Substance: PREDNISONE
     Indication: Product used for unknown indication
  29. APREMILAST [Concomitant]
     Active Substance: APREMILAST
     Indication: Product used for unknown indication
  30. APREMILAST [Concomitant]
     Active Substance: APREMILAST
     Route: 042
  31. APREMILAST [Concomitant]
     Active Substance: APREMILAST
  32. APREMILAST [Concomitant]
     Active Substance: APREMILAST
  33. ARAVA [Concomitant]
     Active Substance: LEFLUNOMIDE
     Indication: Rheumatoid arthritis
  34. ARAVA [Concomitant]
     Active Substance: LEFLUNOMIDE
     Indication: Product used for unknown indication
     Route: 048
  35. ARAVA [Concomitant]
     Active Substance: LEFLUNOMIDE
     Route: 048
  36. ARAVA [Concomitant]
     Active Substance: LEFLUNOMIDE
     Route: 048
  37. CALCIUM CARBONATE [Concomitant]
     Active Substance: CALCIUM CARBONATE
     Indication: Product used for unknown indication
  38. CALCIUM LACTATE GLUCONATE [Concomitant]
     Active Substance: CALCIUM LACTATE GLUCONATE
     Indication: Product used for unknown indication
  39. CALCIUM GLUBIONATE [Concomitant]
     Active Substance: CALCIUM GLUBIONATE
     Indication: Product used for unknown indication
  40. CELEBREX [Concomitant]
     Active Substance: CELECOXIB
     Indication: Product used for unknown indication
     Route: 048
  41. CELEBREX [Concomitant]
     Active Substance: CELECOXIB
  42. CELECOXIB [Concomitant]
     Active Substance: CELECOXIB
     Indication: Product used for unknown indication
  43. CELECOXIB [Concomitant]
     Active Substance: CELECOXIB
  44. CETIRIZINE HYDROCHLORIDE [Concomitant]
     Active Substance: CETIRIZINE HYDROCHLORIDE
     Indication: Rheumatoid arthritis
  45. CETIRIZINE HYDROCHLORIDE [Concomitant]
     Active Substance: CETIRIZINE HYDROCHLORIDE
     Indication: Product used for unknown indication
  46. CETIRIZINE HYDROCHLORIDE [Concomitant]
     Active Substance: CETIRIZINE HYDROCHLORIDE
  47. CETIRIZINE HYDROCHLORIDE [Concomitant]
     Active Substance: CETIRIZINE HYDROCHLORIDE
     Route: 048
  48. CETIRIZINE HYDROCHLORIDE [Concomitant]
     Active Substance: CETIRIZINE HYDROCHLORIDE
     Route: 048
  49. CETIRIZINE HYDROCHLORIDE [Concomitant]
     Active Substance: CETIRIZINE HYDROCHLORIDE
  50. CETIRIZINE HYDROCHLORIDE [Concomitant]
     Active Substance: CETIRIZINE HYDROCHLORIDE
  51. CETIRIZINE HYDROCHLORIDE [Concomitant]
     Active Substance: CETIRIZINE HYDROCHLORIDE
     Route: 048
  52. CETIRIZINE HYDROCHLORIDE [Concomitant]
     Active Substance: CETIRIZINE HYDROCHLORIDE
     Route: 048
  53. CETIRIZINE HYDROCHLORIDE [Concomitant]
     Active Substance: CETIRIZINE HYDROCHLORIDE
  54. CETIRIZINE HYDROCHLORIDE [Concomitant]
     Active Substance: CETIRIZINE HYDROCHLORIDE
     Route: 048
  55. CHLORAPREP [Concomitant]
     Active Substance: CHLORHEXIDINE GLUCONATE\ISOPROPYL ALCOHOL
     Indication: Product used for unknown indication
  56. CHLORAPREP [Concomitant]
     Active Substance: CHLORHEXIDINE GLUCONATE\ISOPROPYL ALCOHOL
     Route: 061
  57. CHLORHEXIDINE [Concomitant]
     Active Substance: CHLORHEXIDINE\CHLORHEXIDINE GLUCONATE
     Indication: Product used for unknown indication
     Route: 048
  58. CHLORHEXIDINE [Concomitant]
     Active Substance: CHLORHEXIDINE\CHLORHEXIDINE GLUCONATE
  59. CHLORHEXIDINE [Concomitant]
     Active Substance: CHLORHEXIDINE\CHLORHEXIDINE GLUCONATE
     Route: 061
  60. CHLORHEXIDINE [Concomitant]
     Active Substance: CHLORHEXIDINE\CHLORHEXIDINE GLUCONATE
     Route: 002
  61. CHLORHEXIDINE GLUCONATE [Concomitant]
     Active Substance: CHLORHEXIDINE GLUCONATE
     Indication: Product used for unknown indication
     Route: 061
  62. CHLORHEXIDINE GLUCONATE [Concomitant]
     Active Substance: CHLORHEXIDINE GLUCONATE
     Route: 048
  63. CHLORHEXIDINE GLUCONATE [Concomitant]
     Active Substance: CHLORHEXIDINE GLUCONATE
     Route: 002
  64. CIMZIA [Concomitant]
     Active Substance: CERTOLIZUMAB PEGOL
     Indication: Rheumatoid arthritis
     Route: 058
  65. CIMZIA [Concomitant]
     Active Substance: CERTOLIZUMAB PEGOL
     Indication: Product used for unknown indication
     Route: 058
  66. CIMZIA [Concomitant]
     Active Substance: CERTOLIZUMAB PEGOL
  67. CIMZIA [Concomitant]
     Active Substance: CERTOLIZUMAB PEGOL
     Route: 058
  68. CIMZIA [Concomitant]
     Active Substance: CERTOLIZUMAB PEGOL
  69. CIMZIA [Concomitant]
     Active Substance: CERTOLIZUMAB PEGOL
     Route: 058
  70. CIMZIA [Concomitant]
     Active Substance: CERTOLIZUMAB PEGOL
  71. CIMZIA [Concomitant]
     Active Substance: CERTOLIZUMAB PEGOL
     Route: 058
  72. CIMZIA [Concomitant]
     Active Substance: CERTOLIZUMAB PEGOL
  73. CORTISONE (HYDROCORTISONE) [Concomitant]
     Active Substance: HYDROCORTISONE
     Indication: Rheumatoid arthritis
  74. CORTISONE (HYDROCORTISONE) [Concomitant]
     Active Substance: HYDROCORTISONE
     Indication: Product used for unknown indication
     Route: 058
  75. CORTISONE (HYDROCORTISONE) [Concomitant]
     Active Substance: HYDROCORTISONE
  76. CORTISONE (HYDROCORTISONE) [Concomitant]
     Active Substance: HYDROCORTISONE
     Route: 048
  77. CORTISONE (HYDROCORTISONE) [Concomitant]
     Active Substance: HYDROCORTISONE
     Route: 003
  78. CORTISONE (HYDROCORTISONE) [Concomitant]
     Active Substance: HYDROCORTISONE
     Route: 061
  79. CORTISONE ACETATE [Concomitant]
     Active Substance: CORTISONE ACETATE
     Indication: Rheumatoid arthritis
     Route: 048
  80. CORTISONE ACETATE [Concomitant]
     Active Substance: CORTISONE ACETATE
     Indication: Product used for unknown indication
     Route: 048
  81. CORTISONE ACETATE [Concomitant]
     Active Substance: CORTISONE ACETATE
     Route: 061
  82. CORTISONE ACETATE [Concomitant]
     Active Substance: CORTISONE ACETATE
  83. COSENTYX [Concomitant]
     Active Substance: SECUKINUMAB
     Indication: Rheumatoid arthritis
  84. COSENTYX [Concomitant]
     Active Substance: SECUKINUMAB
     Indication: Psoriatic arthropathy
     Route: 005
  85. DESOXIMETASONE [Concomitant]
     Active Substance: DESOXIMETASONE
     Indication: Rheumatoid arthritis
     Route: 048
  86. DESOXIMETASONE [Concomitant]
     Active Substance: DESOXIMETASONE
     Indication: Product used for unknown indication
     Route: 003
  87. DESOXIMETASONE [Concomitant]
     Active Substance: DESOXIMETASONE
  88. DESOXIMETASONE [Concomitant]
     Active Substance: DESOXIMETASONE
     Route: 048
  89. DESOXIMETASONE [Concomitant]
     Active Substance: DESOXIMETASONE
     Route: 061
  90. DESOXIMETASONE [Concomitant]
     Active Substance: DESOXIMETASONE
     Route: 048
  91. DESOXIMETASONE [Concomitant]
     Active Substance: DESOXIMETASONE
  92. DESOXIMETASONE [Concomitant]
     Active Substance: DESOXIMETASONE
     Route: 003
  93. DESOXIMETASONE [Concomitant]
     Active Substance: DESOXIMETASONE
     Route: 003
  94. DESOXIMETASONE [Concomitant]
     Active Substance: DESOXIMETASONE
  95. DESOXIMETASONE [Concomitant]
     Active Substance: DESOXIMETASONE
     Route: 061
  96. DESOXIMETASONE [Concomitant]
     Active Substance: DESOXIMETASONE
  97. DESOXIMETASONE [Concomitant]
     Active Substance: DESOXIMETASONE
     Route: 058
  98. DESOXIMETASONE [Concomitant]
     Active Substance: DESOXIMETASONE
     Route: 042
  99. DESOXIMETASONE [Concomitant]
     Active Substance: DESOXIMETASONE
  100. DESOXIMETASONE [Concomitant]
     Active Substance: DESOXIMETASONE
     Route: 048
  101. DESOXIMETASONE [Concomitant]
     Active Substance: DESOXIMETASONE
     Route: 058
  102. DICLOFENAC DIETHYLAMINE [Concomitant]
     Active Substance: DICLOFENAC DIETHYLAMINE
     Indication: Product used for unknown indication
  103. DICLOFENAC POTASSIUM [Concomitant]
     Active Substance: DICLOFENAC POTASSIUM
     Indication: Product used for unknown indication
  104. DICLOFENAC POTASSIUM [Concomitant]
     Active Substance: DICLOFENAC POTASSIUM
     Route: 048
  105. DICLOFENAC SODIUM [Concomitant]
     Active Substance: DICLOFENAC\DICLOFENAC SODIUM
     Indication: Product used for unknown indication
  106. DICLOFENAC SODIUM [Concomitant]
     Active Substance: DICLOFENAC\DICLOFENAC SODIUM
     Route: 048
  107. DOXYCYCLINE [Concomitant]
     Active Substance: DOXYCYCLINE
     Indication: Product used for unknown indication
  108. ENBREL [Concomitant]
     Active Substance: ETANERCEPT
     Indication: Rheumatoid arthritis
     Route: 058
  109. ENBREL [Concomitant]
     Active Substance: ETANERCEPT
     Indication: Psoriatic arthropathy
  110. ENBREL [Concomitant]
     Active Substance: ETANERCEPT
     Indication: Product used for unknown indication
     Route: 058
  111. ENBREL [Concomitant]
     Active Substance: ETANERCEPT
     Route: 058
  112. ENBREL [Concomitant]
     Active Substance: ETANERCEPT
     Route: 058
  113. ERELZI [Concomitant]
     Active Substance: ETANERCEPT-SZZS
     Indication: Rheumatoid arthritis
  114. ERELZI [Concomitant]
     Active Substance: ETANERCEPT-SZZS
     Indication: Product used for unknown indication
     Route: 058
  115. ERELZI [Concomitant]
     Active Substance: ETANERCEPT-SZZS
     Route: 058
  116. FLUMETHASONE PIVALATE [Concomitant]
     Active Substance: FLUMETHASONE PIVALATE
     Indication: Rheumatoid arthritis
     Route: 058
  117. FOLIC ACID [Concomitant]
     Active Substance: FOLIC ACID
     Indication: Rheumatoid arthritis
  118. FOLIC ACID [Concomitant]
     Active Substance: FOLIC ACID
     Indication: Product used for unknown indication
  119. FOLIC ACID [Concomitant]
     Active Substance: FOLIC ACID
  120. FOLIC ACID [Concomitant]
     Active Substance: FOLIC ACID
     Route: 048
  121. FOLIC ACID [Concomitant]
     Active Substance: FOLIC ACID
     Route: 048
  122. FOLIC ACID [Concomitant]
     Active Substance: FOLIC ACID
  123. FOLIC ACID [Concomitant]
     Active Substance: FOLIC ACID
     Route: 058
  124. FOLIC ACID [Concomitant]
     Active Substance: FOLIC ACID
     Route: 048
  125. FOLIC ACID [Concomitant]
     Active Substance: FOLIC ACID
  126. FOLIC ACID [Concomitant]
     Active Substance: FOLIC ACID
  127. FOLIC ACID [Concomitant]
     Active Substance: FOLIC ACID
     Route: 048
  128. FOLIC ACID [Concomitant]
     Active Substance: FOLIC ACID
  129. FOLIC ACID [Concomitant]
     Active Substance: FOLIC ACID
     Route: 048
  130. FOSAMAX [Concomitant]
     Active Substance: ALENDRONATE SODIUM
     Indication: Rheumatoid arthritis
     Route: 048
  131. FOSAMAX [Concomitant]
     Active Substance: ALENDRONATE SODIUM
     Indication: Product used for unknown indication
  132. HUMIRA [Concomitant]
     Active Substance: ADALIMUMAB
     Indication: Rheumatoid arthritis
  133. HUMIRA [Concomitant]
     Active Substance: ADALIMUMAB
     Indication: Psoriatic arthropathy
     Dosage: SOLUTION SUBCUTANEOUS
  134. HUMIRA [Concomitant]
     Active Substance: ADALIMUMAB
     Indication: Product used for unknown indication
     Route: 058
  135. HUMIRA [Concomitant]
     Active Substance: ADALIMUMAB
     Route: 058
  136. HYDROCORTISONE BUTYRATE [Concomitant]
     Active Substance: HYDROCORTISONE BUTYRATE
     Indication: Rheumatoid arthritis
  137. HYDROCORTISONE BUTYRATE [Concomitant]
     Active Substance: HYDROCORTISONE BUTYRATE
     Indication: Product used for unknown indication
     Route: 058
  138. HYDROCORTISONE SODIUM SUCCINATE [Concomitant]
     Active Substance: HYDROCORTISONE SODIUM SUCCINATE
     Indication: Rheumatoid arthritis
  139. HYDROCORTISONE SODIUM SUCCINATE [Concomitant]
     Active Substance: HYDROCORTISONE SODIUM SUCCINATE
     Indication: Product used for unknown indication
  140. HYDROCORTISONE SODIUM SUCCINATE [Concomitant]
     Active Substance: HYDROCORTISONE SODIUM SUCCINATE
     Route: 048
  141. HYDROXYCHLOROQUINE [Concomitant]
     Active Substance: HYDROXYCHLOROQUINE
     Indication: Rheumatoid arthritis
  142. HYDROXYCHLOROQUINE [Concomitant]
     Active Substance: HYDROXYCHLOROQUINE
     Indication: Product used for unknown indication
  143. HYDROXYCHLOROQUINE [Concomitant]
     Active Substance: HYDROXYCHLOROQUINE
  144. HYDROXYCHLOROQUINE [Concomitant]
     Active Substance: HYDROXYCHLOROQUINE
     Route: 048
  145. HYDROXYCHLOROQUINE [Concomitant]
     Active Substance: HYDROXYCHLOROQUINE
     Route: 048
  146. HYDROXYCHLOROQUINE [Concomitant]
     Active Substance: HYDROXYCHLOROQUINE
  147. HYDROXYCHLOROQUINE SULFATE [Concomitant]
     Active Substance: HYDROXYCHLOROQUINE SULFATE
     Indication: Systemic lupus erythematosus
     Route: 048
  148. HYDROXYCHLOROQUINE SULFATE [Concomitant]
     Active Substance: HYDROXYCHLOROQUINE SULFATE
     Indication: Rheumatoid arthritis
     Route: 048
  149. HYDROXYCHLOROQUINE SULFATE [Concomitant]
     Active Substance: HYDROXYCHLOROQUINE SULFATE
     Indication: Product used for unknown indication
  150. HYDROXYCHLOROQUINE SULFATE [Concomitant]
     Active Substance: HYDROXYCHLOROQUINE SULFATE
  151. HYDROXYCHLOROQUINE SULFATE [Concomitant]
     Active Substance: HYDROXYCHLOROQUINE SULFATE
  152. HYDROXYCHLOROQUINE SULFATE [Concomitant]
     Active Substance: HYDROXYCHLOROQUINE SULFATE
     Route: 048
  153. HYDROXYCHLOROQUINE SULFATE [Concomitant]
     Active Substance: HYDROXYCHLOROQUINE SULFATE
     Route: 058
  154. HYDROXYCHLOROQUINE SULFATE [Concomitant]
     Active Substance: HYDROXYCHLOROQUINE SULFATE
     Route: 048
  155. HYDROXYCHLOROQUINE SULFATE [Concomitant]
     Active Substance: HYDROXYCHLOROQUINE SULFATE
  156. ISOPROPYL ALCOHOL [Concomitant]
     Active Substance: ISOPROPYL ALCOHOL
     Indication: Product used for unknown indication
     Dosage: LIQUID TOPICAL
     Route: 061
  157. LEFLUNOMIDE [Concomitant]
     Active Substance: LEFLUNOMIDE
     Indication: Rheumatoid arthritis
  158. LEFLUNOMIDE [Concomitant]
     Active Substance: LEFLUNOMIDE
     Indication: Product used for unknown indication
     Route: 048
  159. LEFLUNOMIDE [Concomitant]
     Active Substance: LEFLUNOMIDE
     Route: 048
  160. LYRICA [Concomitant]
     Active Substance: PREGABALIN
     Indication: Product used for unknown indication
  161. METHOTREXATE [Concomitant]
     Active Substance: METHOTREXATE
     Indication: Rheumatoid arthritis
     Route: 048
  162. METHOTREXATE [Concomitant]
     Active Substance: METHOTREXATE
     Indication: Product used for unknown indication
     Route: 048
  163. METHOTREXATE [Concomitant]
     Active Substance: METHOTREXATE
     Route: 048
  164. METHOTREXATE [Concomitant]
     Active Substance: METHOTREXATE
     Route: 058
  165. METHOTREXATE [Concomitant]
     Active Substance: METHOTREXATE
     Route: 058
  166. METHOTREXATE [Concomitant]
     Active Substance: METHOTREXATE
     Route: 048
  167. METHOTREXATE [Concomitant]
     Active Substance: METHOTREXATE
     Route: 048
  168. METHOTREXATE [Concomitant]
     Active Substance: METHOTREXATE
     Route: 048
  169. METHOTREXATE [Concomitant]
     Active Substance: METHOTREXATE
     Route: 058
  170. METHOTREXATE [Concomitant]
     Active Substance: METHOTREXATE
     Route: 058
  171. METHOTREXATE [Concomitant]
     Active Substance: METHOTREXATE
     Route: 058
  172. METHOTREXATE [Concomitant]
     Active Substance: METHOTREXATE
     Route: 013
  173. METHOTREXATE [Concomitant]
     Active Substance: METHOTREXATE
  174. METHOTREXATE [Concomitant]
     Active Substance: METHOTREXATE
     Route: 048
  175. METHOTREXATE [Concomitant]
     Active Substance: METHOTREXATE
     Route: 048
  176. METHOTREXATE [Concomitant]
     Active Substance: METHOTREXATE
     Route: 013
  177. METHOTREXATE [Concomitant]
     Active Substance: METHOTREXATE
     Route: 013
  178. METHOTREXATE [Concomitant]
     Active Substance: METHOTREXATE
     Route: 058
  179. METHOTREXATE [Concomitant]
     Active Substance: METHOTREXATE
  180. METHOTREXATE [Concomitant]
     Active Substance: METHOTREXATE
     Route: 013
  181. METHOTREXATE [Concomitant]
     Active Substance: METHOTREXATE
     Route: 048
  182. METHOTREXATE [Concomitant]
     Active Substance: METHOTREXATE
     Route: 048
  183. MYCOPHENOLATE MOFETIL [Concomitant]
     Active Substance: MYCOPHENOLATE MOFETIL
     Indication: Product used for unknown indication
  184. NAPROXEN SODIUM [Concomitant]
     Active Substance: NAPROXEN\NAPROXEN SODIUM
     Indication: Rheumatoid arthritis
  185. NAPROXEN SODIUM [Concomitant]
     Active Substance: NAPROXEN\NAPROXEN SODIUM
     Indication: Product used for unknown indication
  186. NEOMYCIN [Concomitant]
     Active Substance: NEOMYCIN
     Indication: Product used for unknown indication
  187. OTEZLA [Concomitant]
     Active Substance: APREMILAST
     Indication: Product used for unknown indication
     Route: 048
  188. OXYCODONE [Concomitant]
     Active Substance: OXYCODONE
     Indication: Product used for unknown indication
  189. OXYCODONE HYDROCHLORIDE [Concomitant]
     Active Substance: OXYCODONE HYDROCHLORIDE
     Indication: Product used for unknown indication
  190. OXYCODONE TEREPHTHALATE [Concomitant]
     Active Substance: OXYCODONE TEREPHTHALATE
     Indication: Product used for unknown indication
     Route: 016
  191. OXYCODONE TEREPHTHALATE [Concomitant]
     Active Substance: OXYCODONE TEREPHTHALATE
  192. PERIOGARD [Concomitant]
     Active Substance: CHLORHEXIDINE GLUCONATE
     Indication: Product used for unknown indication
     Route: 016
  193. PERIOGARD [Concomitant]
     Active Substance: CHLORHEXIDINE GLUCONATE
  194. PERIOGARD [Concomitant]
     Active Substance: CHLORHEXIDINE GLUCONATE
     Route: 002
  195. PHTHALYLSULFATHIAZOLE [Concomitant]
     Active Substance: PHTHALYLSULFATHIAZOLE
     Indication: Rheumatoid arthritis
  196. PHTHALYLSULFATHIAZOLE [Concomitant]
     Active Substance: PHTHALYLSULFATHIAZOLE
     Indication: Product used for unknown indication
     Route: 048
  197. PHTHALYLSULFATHIAZOLE [Concomitant]
     Active Substance: PHTHALYLSULFATHIAZOLE
     Route: 048
  198. PHTHALYLSULFATHIAZOLE [Concomitant]
     Active Substance: PHTHALYLSULFATHIAZOLE
     Route: 048
  199. PHTHALYLSULFATHIAZOLE [Concomitant]
     Active Substance: PHTHALYLSULFATHIAZOLE
     Route: 042
  200. PHTHALYLSULFATHIAZOLE [Concomitant]
     Active Substance: PHTHALYLSULFATHIAZOLE
     Route: 016
  201. PHTHALYLSULFATHIAZOLE [Concomitant]
     Active Substance: PHTHALYLSULFATHIAZOLE
  202. PREDNISONE [Concomitant]
     Active Substance: PREDNISONE
     Indication: Rheumatoid arthritis
     Route: 042
  203. PREDNISONE [Concomitant]
     Active Substance: PREDNISONE
     Indication: Psoriatic arthropathy
  204. PREDNISONE [Concomitant]
     Active Substance: PREDNISONE
     Indication: Product used for unknown indication
     Route: 048
  205. PREDNISONE [Concomitant]
     Active Substance: PREDNISONE
     Route: 048
  206. PREDNISONE [Concomitant]
     Active Substance: PREDNISONE
  207. PREDNISONE [Concomitant]
     Active Substance: PREDNISONE
  208. PREDNISONE [Concomitant]
     Active Substance: PREDNISONE
  209. PREDNISONE [Concomitant]
     Active Substance: PREDNISONE
     Route: 048
  210. PREDNISONE [Concomitant]
     Active Substance: PREDNISONE
     Route: 048
  211. PREGABALIN [Concomitant]
     Active Substance: PREGABALIN
     Indication: Product used for unknown indication
  212. PSEUDOEPHEDRINE HYDROCHLORIDE [Concomitant]
     Active Substance: PSEUDOEPHEDRINE HYDROCHLORIDE
     Indication: Rheumatoid arthritis
  213. PSEUDOEPHEDRINE HYDROCHLORIDE [Concomitant]
     Active Substance: PSEUDOEPHEDRINE HYDROCHLORIDE
     Indication: Product used for unknown indication
  214. PSEUDOEPHEDRINE HYDROCHLORIDE [Concomitant]
     Active Substance: PSEUDOEPHEDRINE HYDROCHLORIDE
  215. PSEUDOEPHEDRINE HYDROCHLORIDE [Concomitant]
     Active Substance: PSEUDOEPHEDRINE HYDROCHLORIDE
  216. CETIRIZINE HYDROCHLORIDE [Concomitant]
     Active Substance: CETIRIZINE HYDROCHLORIDE
     Indication: Rheumatoid arthritis
  217. CETIRIZINE HYDROCHLORIDE [Concomitant]
     Active Substance: CETIRIZINE HYDROCHLORIDE
     Indication: Product used for unknown indication
  218. CETIRIZINE HYDROCHLORIDE [Concomitant]
     Active Substance: CETIRIZINE HYDROCHLORIDE
     Route: 048
  219. CETIRIZINE HYDROCHLORIDE\PSEUDOEPHEDRINE HYDROCHLORIDE [Concomitant]
     Active Substance: CETIRIZINE HYDROCHLORIDE\PSEUDOEPHEDRINE HYDROCHLORIDE
     Indication: Rheumatoid arthritis
  220. CETIRIZINE HYDROCHLORIDE\PSEUDOEPHEDRINE HYDROCHLORIDE [Concomitant]
     Active Substance: CETIRIZINE HYDROCHLORIDE\PSEUDOEPHEDRINE HYDROCHLORIDE
     Indication: Product used for unknown indication
  221. CETIRIZINE HYDROCHLORIDE\PSEUDOEPHEDRINE HYDROCHLORIDE [Concomitant]
     Active Substance: CETIRIZINE HYDROCHLORIDE\PSEUDOEPHEDRINE HYDROCHLORIDE
  222. CETIRIZINE HYDROCHLORIDE\PSEUDOEPHEDRINE HYDROCHLORIDE [Concomitant]
     Active Substance: CETIRIZINE HYDROCHLORIDE\PSEUDOEPHEDRINE HYDROCHLORIDE
     Dosage: TABLET (EXTENDED RELEASE)
     Route: 048
  223. REMICADE [Concomitant]
     Active Substance: INFLIXIMAB
     Indication: Rheumatoid arthritis
     Route: 042
  224. REMICADE [Concomitant]
     Active Substance: INFLIXIMAB
     Indication: Product used for unknown indication
     Route: 042
  225. REMICADE [Concomitant]
     Active Substance: INFLIXIMAB
     Dosage: POWDER FOR SOLUTION INTRAVENOUS
  226. REMICADE [Concomitant]
     Active Substance: INFLIXIMAB
     Route: 042
  227. REMICADE [Concomitant]
     Active Substance: INFLIXIMAB
     Route: 042
  228. REMICADE [Concomitant]
     Active Substance: INFLIXIMAB
  229. RITUXIMAB [Concomitant]
     Active Substance: RITUXIMAB
     Indication: Rheumatoid arthritis
     Route: 042
  230. RITUXIMAB [Concomitant]
     Active Substance: RITUXIMAB
     Indication: Product used for unknown indication
     Route: 042
  231. RITUXIMAB [Concomitant]
     Active Substance: RITUXIMAB
     Route: 058
  232. SULFASALAZINE [Concomitant]
     Active Substance: SULFASALAZINE
     Indication: Rheumatoid arthritis
     Route: 048
  233. SULFASALAZINE [Concomitant]
     Active Substance: SULFASALAZINE
     Indication: Product used for unknown indication
  234. SULFASALAZINE [Concomitant]
     Active Substance: SULFASALAZINE
     Route: 048
  235. SULFASALAZINE [Concomitant]
     Active Substance: SULFASALAZINE
     Route: 048
  236. SULFASALAZINE [Concomitant]
     Active Substance: SULFASALAZINE
     Route: 048
  237. SIMPONI [Concomitant]
     Active Substance: GOLIMUMAB
     Indication: Rheumatoid arthritis
  238. SIMPONI [Concomitant]
     Active Substance: GOLIMUMAB
     Indication: Psoriatic arthropathy
     Dosage: SOLUTION SUBCUTANEOUS
     Route: 058
  239. SIMPONI [Concomitant]
     Active Substance: GOLIMUMAB
     Indication: Product used for unknown indication
     Route: 058
  240. SIMPONI [Concomitant]
     Active Substance: GOLIMUMAB
     Route: 042
  241. SIMPONI [Concomitant]
     Active Substance: GOLIMUMAB
     Route: 052
  242. SIMPONI [Concomitant]
     Active Substance: GOLIMUMAB
     Route: 058
  243. SIMPONI [Concomitant]
     Active Substance: GOLIMUMAB
  244. SIMPONI [Concomitant]
     Active Substance: GOLIMUMAB
     Route: 058
  245. SIMPONI [Concomitant]
     Active Substance: GOLIMUMAB
     Route: 042
  246. STELARA [Concomitant]
     Active Substance: USTEKINUMAB
     Indication: Psoriatic arthropathy
     Route: 058
  247. STELARA [Concomitant]
     Active Substance: USTEKINUMAB
     Indication: Product used for unknown indication
     Route: 042
  248. STELARA [Concomitant]
     Active Substance: USTEKINUMAB
     Route: 042
  249. STELARA [Concomitant]
     Active Substance: USTEKINUMAB
     Route: 058
  250. STELARA [Concomitant]
     Active Substance: USTEKINUMAB
     Route: 058
  251. STELARA [Concomitant]
     Active Substance: USTEKINUMAB
     Dosage: SOLUTION SUBCUTANEOUS
  252. SULFAMETHOXAZOLE [Concomitant]
     Active Substance: SULFAMETHOXAZOLE
     Indication: Product used for unknown indication
  253. SULFAMETHOXAZOLE\TRIMETHOPRIM [Concomitant]
     Active Substance: SULFAMETHOXAZOLE\TRIMETHOPRIM
     Indication: Product used for unknown indication
  254. SULFASALAZINE [Concomitant]
     Active Substance: SULFASALAZINE
     Indication: Rheumatoid arthritis
     Route: 048
  255. SULFASALAZINE [Concomitant]
     Active Substance: SULFASALAZINE
     Indication: Product used for unknown indication
     Route: 048
  256. SULFASALAZINE [Concomitant]
     Active Substance: SULFASALAZINE
  257. SULFASALAZINE [Concomitant]
     Active Substance: SULFASALAZINE
     Route: 048
  258. SULFASALAZINE [Concomitant]
     Active Substance: SULFASALAZINE
     Route: 058
  259. SULFASALAZINE [Concomitant]
     Active Substance: SULFASALAZINE
     Route: 048
  260. SULFASALAZINE [Concomitant]
     Active Substance: SULFASALAZINE
  261. SULFASALAZINE [Concomitant]
     Active Substance: SULFASALAZINE
     Route: 048
  262. SULFASALAZINE [Concomitant]
     Active Substance: SULFASALAZINE
     Route: 048
  263. SULFASALAZINE [Concomitant]
     Active Substance: SULFASALAZINE
     Route: 048
  264. SULFASALAZINE [Concomitant]
     Active Substance: SULFASALAZINE
  265. SULFASALAZINE [Concomitant]
     Active Substance: SULFASALAZINE
     Route: 048
  266. SULFASALAZINE [Concomitant]
     Active Substance: SULFASALAZINE
  267. SULFASALAZINE [Concomitant]
     Active Substance: SULFASALAZINE
     Route: 058
  268. SULFASALAZINE [Concomitant]
     Active Substance: SULFASALAZINE
     Route: 048
  269. SULFASALAZINE [Concomitant]
     Active Substance: SULFASALAZINE
     Route: 048
  270. SULFASALAZINE [Concomitant]
     Active Substance: SULFASALAZINE
     Route: 048
  271. TOCILIZUMAB [Concomitant]
     Active Substance: TOCILIZUMAB
     Indication: Rheumatoid arthritis
     Route: 058
  272. TOCILIZUMAB [Concomitant]
     Active Substance: TOCILIZUMAB
     Indication: Product used for unknown indication
  273. TOFACITINIB CITRATE [Concomitant]
     Active Substance: TOFACITINIB CITRATE
     Indication: Rheumatoid arthritis
  274. TOFACITINIB CITRATE [Concomitant]
     Active Substance: TOFACITINIB CITRATE
     Indication: Psoriatic arthropathy
  275. TOFACITINIB CITRATE [Concomitant]
     Active Substance: TOFACITINIB CITRATE
     Indication: Product used for unknown indication
  276. TRAMADOL HYDROCHLORIDE [Concomitant]
     Active Substance: TRAMADOL HYDROCHLORIDE
     Indication: Product used for unknown indication
  277. TRIAMCINOLONE ACETONIDE [Concomitant]
     Active Substance: TRIAMCINOLONE ACETONIDE
     Indication: Rheumatoid arthritis
     Dosage: SUSPENSION INTRA- ARTICULAR
  278. VITAMIN C [Concomitant]
     Active Substance: ASCORBIC ACID
     Indication: Product used for unknown indication
     Route: 016
  279. VITAMIN C [Concomitant]
     Active Substance: ASCORBIC ACID
  280. VITAMIN D3 [Concomitant]
     Active Substance: CHOLECALCIFEROL
     Indication: Product used for unknown indication
  281. PREDNISONE [Concomitant]
     Active Substance: PREDNISONE
     Indication: Rheumatoid arthritis
  282. PREDNISONE [Concomitant]
     Active Substance: PREDNISONE
     Indication: Product used for unknown indication
     Route: 048
  283. XELJANZ [Concomitant]
     Active Substance: TOFACITINIB CITRATE
     Indication: Rheumatoid arthritis
     Route: 048
  284. XELJANZ [Concomitant]
     Active Substance: TOFACITINIB CITRATE
     Indication: Product used for unknown indication
  285. XELJANZ [Concomitant]
     Active Substance: TOFACITINIB CITRATE
  286. XELJANZ [Concomitant]
     Active Substance: TOFACITINIB CITRATE
     Route: 048
  287. XELJANZ [Concomitant]
     Active Substance: TOFACITINIB CITRATE
     Route: 048
  288. XELJANZ [Concomitant]
     Active Substance: TOFACITINIB CITRATE
  289. APREPITANT [Concomitant]
     Active Substance: APREPITANT
     Indication: Product used for unknown indication
  290. APREPITANT [Concomitant]
     Active Substance: APREPITANT
     Route: 048
  291. APREPITANT [Concomitant]
     Active Substance: APREPITANT
  292. BORAGE OIL [Concomitant]
     Active Substance: BORAGE OIL
     Indication: Product used for unknown indication
  293. CYANOCOBALAMIN [Concomitant]
     Active Substance: CYANOCOBALAMIN
     Indication: Product used for unknown indication

REACTIONS (1)
  - Death [Fatal]
